FAERS Safety Report 16839223 (Version 2)
Quarter: 2019Q4

REPORT INFORMATION
  Report Type: Spontaneous
  Country: JP (occurrence: JP)
  Receive Date: 20190923
  Receipt Date: 20191122
  Transmission Date: 20200122
  Serious: Yes (Other)
  Sender: FDA-Public Use
  Company Number: JP-JNJFOC-20190926101

PATIENT
  Age: 5 Decade
  Sex: Male

DRUGS (28)
  1. REMICADE [Suspect]
     Active Substance: INFLIXIMAB
     Route: 042
  2. CODEINE PHOSPHATE [Concomitant]
     Active Substance: CODEINE PHOSPHATE
     Route: 048
  3. STELARA [Suspect]
     Active Substance: USTEKINUMAB
     Route: 058
     Dates: start: 20190723
  4. LIDOMEX [Concomitant]
     Active Substance: PREDNISOLONE VALERATE ACETATE
     Route: 061
  5. ISODINE [Concomitant]
     Active Substance: POVIDONE-IODINE
     Route: 051
  6. VOLTAREN [Concomitant]
     Active Substance: DICLOFENAC SODIUM
     Route: 048
  7. LYRICA [Concomitant]
     Active Substance: PREGABALIN
     Route: 048
  8. CATLEP [Concomitant]
     Active Substance: INDOMETHACIN
     Route: 061
  9. NERIPROCT [Concomitant]
     Active Substance: DIFLUCORTOLONE VALERATE\LIDOCAINE
     Route: 061
  10. LEXOTAN [Concomitant]
     Active Substance: BROMAZEPAM
     Route: 048
  11. RINDERON V [Concomitant]
     Active Substance: BETAMETHASONE VALERATE
     Route: 054
  12. KERATINAMIN [Concomitant]
     Active Substance: UREA
     Route: 061
  13. ADONA                              /00056903/ [Concomitant]
     Active Substance: CARBAZOCHROME SODIUM SULFONATE
     Route: 048
  14. PREDONINE [Concomitant]
     Active Substance: PREDNISOLONE
     Route: 048
  15. FLAGYL [Concomitant]
     Active Substance: METRONIDAZOLE\METRONIDAZOLE HYDROCHLORIDE
     Route: 048
  16. ALLELOCK [Concomitant]
     Active Substance: OLOPATADINE HYDROCHLORIDE
     Route: 048
  17. LOPEMIN                            /00384302/ [Concomitant]
     Active Substance: LOPERAMIDE HYDROCHLORIDE
     Route: 048
  18. REMICADE [Suspect]
     Active Substance: INFLIXIMAB
     Route: 042
  19. URSO [Suspect]
     Active Substance: URSODIOL
     Indication: PRODUCT USED FOR UNKNOWN INDICATION
     Route: 048
  20. PHYSIO 35 [Concomitant]
     Active Substance: ELECTROLYTES NOS
     Route: 051
  21. HEPARIN NA LOCK [Concomitant]
     Active Substance: HEPARIN SODIUM
     Route: 065
  22. PENLES [Concomitant]
     Active Substance: LIDOCAINE
     Route: 061
  23. ULTRACET [Concomitant]
     Active Substance: ACETAMINOPHEN\TRAMADOL HYDROCHLORIDE
     Route: 048
  24. PENTASA [Concomitant]
     Active Substance: MESALAMINE
     Route: 048
  25. GASTER [Concomitant]
     Active Substance: FAMOTIDINE
     Route: 048
  26. REMICADE [Suspect]
     Active Substance: INFLIXIMAB
     Indication: CROHN^S DISEASE
     Route: 042
  27. STELARA [Suspect]
     Active Substance: USTEKINUMAB
     Indication: CROHN^S DISEASE
     Route: 058
     Dates: start: 20190528
  28. DAIKENCHUTO [Concomitant]
     Active Substance: HERBALS
     Route: 048

REACTIONS (6)
  - Haematochezia [Recovered/Resolved]
  - Diarrhoea [Recovered/Resolved]
  - Rash [Recovered/Resolved]
  - Erectile dysfunction [Recovered/Resolved]
  - Weight increased [Not Recovered/Not Resolved]
  - Therapeutic product effect decreased [Not Recovered/Not Resolved]

NARRATIVE: CASE EVENT DATE: 20190809
